FAERS Safety Report 4838139-9 (Version None)
Quarter: 2005Q4

REPORT INFORMATION
  Report Type: 
  Country: None (occurrence: None)
  Receive Date: 20051123
  Receipt Date: 20051123
  Transmission Date: 20060501
  Serious: Yes (Life-Threatening)
  Sender: FDA-Public Use
  Company Number: None

PATIENT
  Sex: Male
  Weight: 103.4 kg

DRUGS (13)
  1. TACROLIMUS 3.1 MG IV DAILY [Suspect]
     Indication: GRAFT VERSUS HOST DISEASE
     Dosage: 3.1 MG IV DAILY
     Route: 042
     Dates: start: 20050521
  2. TACROLIMUS 3.1 MG IV DAILY [Suspect]
     Indication: PROPHYLAXIS
     Dosage: 3.1 MG IV DAILY
     Route: 042
     Dates: start: 20050521
  3. M.V.I. [Concomitant]
  4. BACTRIM DS [Concomitant]
  5. NYSTATIN [Concomitant]
  6. TOCOPHEROL CONCENTRATE CAP [Concomitant]
  7. GLUTAMINE [Concomitant]
  8. OXYCODONE [Concomitant]
  9. METOPROLOL [Concomitant]
  10. AMLODIPINE [Concomitant]
  11. DOCUSATE [Concomitant]
  12. LORAZEPAM [Concomitant]
  13. ACYCLOVIR [Concomitant]

REACTIONS (2)
  - DYSPNOEA [None]
  - SWELLING FACE [None]
